FAERS Safety Report 12568682 (Version 3)
Quarter: 2017Q3

REPORT INFORMATION
  Report Type: Spontaneous
  Country: NZ (occurrence: NZ)
  Receive Date: 20160719
  Receipt Date: 20170901
  Transmission Date: 20171127
  Serious: Yes (Death, Other)
  Sender: FDA-Public Use
  Company Number: NZ-TEVA-678020ACC

PATIENT
  Age: 66 Year

DRUGS (7)
  1. RIBOMUSTIN [Suspect]
     Active Substance: BENDAMUSTINE HYDROCHLORIDE
     Dosage: (3 CYCLE)
     Route: 042
     Dates: start: 201312
  2. RITUXIMAB. [Suspect]
     Active Substance: RITUXIMAB
     Indication: PRODUCT USED FOR UNKNOWN INDICATION
     Dosage: CYCLE 1
     Route: 065
     Dates: start: 201309
  3. CYTARABINE. [Suspect]
     Active Substance: CYTARABINE
     Dosage: (4 CYCLE)
     Route: 065
     Dates: start: 201408
  4. RIBOMUSTIN [Suspect]
     Active Substance: BENDAMUSTINE HYDROCHLORIDE
     Indication: PRODUCT USED FOR UNKNOWN INDICATION
     Dosage: 1 CYCLE
     Route: 042
     Dates: start: 201309
  5. CYTARABINE. [Suspect]
     Active Substance: CYTARABINE
     Indication: PRODUCT USED FOR UNKNOWN INDICATION
     Dosage: (1 CYCLE)
     Route: 065
     Dates: start: 201309
  6. RIBOMUSTIN [Suspect]
     Active Substance: BENDAMUSTINE HYDROCHLORIDE
     Dosage: (4 CYCLE)
     Route: 042
     Dates: start: 201408
  7. CYTARABINE. [Suspect]
     Active Substance: CYTARABINE
     Dosage: (3 CYCLE)
     Route: 065
     Dates: start: 201312

REACTIONS (2)
  - Disease progression [Unknown]
  - Death [Fatal]

NARRATIVE: CASE EVENT DATE: 201408
